FAERS Safety Report 8903937 (Version 4)
Quarter: 2013Q1

REPORT INFORMATION
  Report Type: Spontaneous
  Country: JP (occurrence: JP)
  Receive Date: 20121112
  Receipt Date: 20130308
  Transmission Date: 20140127
  Serious: Yes (Hospitalization)
  Sender: FDA-Public Use
  Company Number: JP-ASTRAZENECA-2012SE84043

PATIENT
  Age: 74 Year
  Sex: Male
  Weight: 70 kg

DRUGS (9)
  1. NEXIUM [Suspect]
     Indication: GASTRITIS
     Route: 048
     Dates: start: 20120908, end: 20121015
  2. HANGESHASHINTO [Suspect]
     Indication: GASTRITIS
     Route: 048
     Dates: start: 20120908, end: 20121015
  3. OMEPRAL IV [Concomitant]
     Route: 042
  4. OMEPRAL [Concomitant]
     Route: 048
  5. NIFEDIPINE [Concomitant]
     Indication: HYPERTENSION
     Route: 048
     Dates: end: 20121015
  6. BLOPRESS [Concomitant]
     Indication: HYPERTENSION
     Route: 048
     Dates: end: 20121015
  7. EVIPROSTAT [Concomitant]
     Indication: BENIGN PROSTATIC HYPERPLASIA
     Route: 048
     Dates: start: 20120607, end: 20121015
  8. BANAN [Concomitant]
     Indication: CYSTOSCOPY
     Route: 048
     Dates: start: 20120927, end: 20120928
  9. ADOAIR [Concomitant]
     Indication: ASTHMA
     Dosage: DOSE UNKNOWN
     Route: 055

REACTIONS (1)
  - Interstitial lung disease [Recovered/Resolved]
